FAERS Safety Report 6540469-X (Version None)
Quarter: 2010Q1

REPORT INFORMATION
  Report Type: 
  Country: None (occurrence: None)
  Receive Date: 20100113
  Receipt Date: 20100105
  Transmission Date: 20100710
  Serious: Yes (Hospitalization, Disabling)
  Sender: FDA-Public Use
  Company Number: 465861

PATIENT
  Age: 13 Year
  Sex: Male
  Weight: 61 kg

DRUGS (2)
  1. CYTARABINE [Suspect]
     Indication: DRUG USE FOR UNKNOWN INDICATION
     Dosage: 3000 MG/M2 ( 12 HOUR) INTRAVENOUS (NOT OTHERWISE SPECIFIED)
     Route: 042
  2. (NELANABINE) [Suspect]
     Indication: DRUG USE FOR UNKNOWN INDICATION
     Dosage: 650 MG/M2 (1 DAY ) INTRAVENOUS (NOT OTHERWISE SPECIFIED)
     Route: 042

REACTIONS (3)
  - DEMYELINATING POLYNEUROPATHY [None]
  - DRUG INTERACTION [None]
  - LOWER MOTOR NEURONE LESION [None]
